FAERS Safety Report 4284886-X (Version None)
Quarter: 2004Q1

REPORT INFORMATION
  Report Type: 
  Country: None (occurrence: None)
  Receive Date: 20040202
  Receipt Date: 20040122
  Transmission Date: 20041129
  Serious: Yes (Death, Hospitalization)
  Sender: FDA-Public Use
  Company Number: 200410296FR

PATIENT
  Sex: Male

DRUGS (1)
  1. BIRODOGYL [Suspect]

REACTIONS (4)
  - CEREBRAL HAEMORRHAGE [None]
  - DEHYDRATION [None]
  - DIARRHOEA [None]
  - VOMITING [None]
